FAERS Safety Report 8592834-7 (Version None)
Quarter: 2012Q3

REPORT INFORMATION
  Report Type: 
  Country: None (occurrence: None)
  Receive Date: 20120814
  Receipt Date: 20120731
  Transmission Date: 20120928
  Serious: Yes (Hospitalization)
  Sender: FDA-Public Use
  Company Number: FR-ROCHE-1095705

PATIENT
  Age: 51 Year
  Sex: Male

DRUGS (8)
  1. CELLCEPT [Suspect]
     Dates: start: 20110707, end: 20111228
  2. VALGANCICLOVIR [Suspect]
     Indication: PROPHYLAXIS
     Route: 048
     Dates: start: 20110301, end: 20120127
  3. GANCICLOVIR SODIUM [Suspect]
     Dates: start: 20111230, end: 20120127
  4. CELLCEPT [Suspect]
  5. NEXIUM [Concomitant]
  6. GANCICLOVIR SODIUM [Suspect]
     Indication: INFECTION
     Route: 048
     Dates: start: 20111014
  7. TACROLIMUS [Concomitant]
  8. CELLCEPT [Suspect]
     Indication: PROPHYLAXIS
     Dates: start: 20110201

REACTIONS (1)
  - PANCYTOPENIA [None]
